FAERS Safety Report 9160966 (Version 2)
Quarter: 2013Q2

REPORT INFORMATION
  Report Type: Spontaneous
  Country: US (occurrence: US)
  Receive Date: 20130313
  Receipt Date: 20130403
  Transmission Date: 20140414
  Serious: No
  Sender: FDA-Public Use
  Company Number: US-PFIZER INC-2013083818

PATIENT
  Age: 52 Year
  Sex: Female
  Weight: 49.89 kg

DRUGS (5)
  1. NEURONTIN [Suspect]
     Indication: ANXIETY
     Dosage: 800 MG, 3X/DAY
     Route: 048
     Dates: end: 201303
  2. NEURONTIN [Suspect]
     Indication: DEPRESSION
  3. NEURONTIN [Suspect]
     Indication: DEPERSONALISATION
  4. PROZAC [Concomitant]
     Dosage: UNK
  5. BUSPAR [Concomitant]
     Dosage: UNK

REACTIONS (3)
  - Withdrawal syndrome [Unknown]
  - Diarrhoea [Unknown]
  - Cold sweat [Unknown]
